FAERS Safety Report 19513662 (Version 1)
Quarter: 2021Q3

REPORT INFORMATION
  Report Type: Spontaneous
  Country: US (occurrence: US)
  Receive Date: 20210709
  Receipt Date: 20210709
  Transmission Date: 20211014
  Serious: Yes (Life-Threatening, Hospitalization)
  Sender: FDA-Public Use
  Company Number: US-MYLANLABS-2021M1040707

PATIENT
  Age: 47 Year
  Sex: Male

DRUGS (23)
  1. EPINEPHRINE. [Suspect]
     Active Substance: EPINEPHRINE
     Dosage: 10?50 MICROGRAM/MIN
     Route: 042
  2. CALCIUM CHLORIDE. [Concomitant]
     Active Substance: CALCIUM CHLORIDE
     Indication: EVIDENCE BASED TREATMENT
     Dosage: 1 GRAM MULTIPLE DOSES
     Route: 065
  3. SODIUM BICARBONATE. [Concomitant]
     Active Substance: SODIUM BICARBONATE
     Indication: METABOLIC ACIDOSIS
  4. ROCURONIUM [Concomitant]
     Active Substance: ROCURONIUM BROMIDE
     Indication: ENDOTRACHEAL INTUBATION
     Dosage: 120 MILLIGRAM
     Route: 065
  5. INSULIN [Concomitant]
     Active Substance: INSULIN NOS
     Dosage: 10 INTERNATIONAL UNIT, QH
     Route: 042
  6. EPINEPHRINE. [Suspect]
     Active Substance: EPINEPHRINE
     Indication: HYPOTENSION
     Dosage: 900 MICROGRAM 0.9 MG
     Route: 042
  7. SODIUM BICARBONATE. [Concomitant]
     Active Substance: SODIUM BICARBONATE
     Indication: HYPERKALAEMIA
     Dosage: 1000 MILLILITER 154 (MEQ/L) IN 5% DEXTROSE/WATER; BOLUSES
     Route: 065
  8. SODIUM BICARBONATE. [Concomitant]
     Active Substance: SODIUM BICARBONATE
     Indication: EVIDENCE BASED TREATMENT
  9. ETOMIDATE. [Concomitant]
     Active Substance: ETOMIDATE
     Indication: ENDOTRACHEAL INTUBATION
     Dosage: 10 MILLIGRAM
     Route: 065
  10. NOREPINEPHRINE. [Concomitant]
     Active Substance: NOREPINEPHRINE
     Indication: BRADYCARDIA
     Dosage: UNK
     Route: 042
  11. DEXTROSE. [Concomitant]
     Active Substance: DEXTROSE
     Indication: VEHICLE SOLUTION USE
     Dosage: UNK
     Route: 065
  12. SODIUM BICARBONATE. [Concomitant]
     Active Substance: SODIUM BICARBONATE
     Indication: HYPERKALAEMIA
     Dosage: BOLUSES
     Route: 065
  13. SODIUM BICARBONATE. [Concomitant]
     Active Substance: SODIUM BICARBONATE
     Indication: METABOLIC ACIDOSIS
  14. INSULIN [Concomitant]
     Active Substance: INSULIN NOS
     Indication: TYPE 1 DIABETES MELLITUS
     Dosage: 10 INTERNATIONAL UNIT
     Route: 040
  15. EPINEPHRINE. [Suspect]
     Active Substance: EPINEPHRINE
     Indication: BRADYCARDIA
     Dosage: 20?80 MICROGRAM
     Route: 040
  16. EPINEPHRINE. [Suspect]
     Active Substance: EPINEPHRINE
     Dosage: 1MG
     Route: 040
  17. CALCIUM CHLORIDE. [Concomitant]
     Active Substance: CALCIUM CHLORIDE
     Indication: METABOLIC ACIDOSIS
     Dosage: 10 GRAM RECEIVED TOTAL CALCIUM CHLORIDE TILL ALKALINISATION
     Route: 065
  18. NOREPINEPHRINE. [Concomitant]
     Active Substance: NOREPINEPHRINE
     Indication: HYPOTENSION
  19. VASOPRESSIN. [Concomitant]
     Active Substance: VASOPRESSIN
     Indication: BRADYCARDIA
     Dosage: UNK
     Route: 042
  20. CALCIUM CHLORIDE. [Concomitant]
     Active Substance: CALCIUM CHLORIDE
     Indication: HYPERKALAEMIA
     Dosage: BOLUSES
     Route: 065
  21. VASOPRESSIN. [Concomitant]
     Active Substance: VASOPRESSIN
     Indication: HYPOTENSION
  22. EPINEPHRINE. [Suspect]
     Active Substance: EPINEPHRINE
     Dosage: FULL DOSE
     Route: 042
  23. SODIUM BICARBONATE. [Concomitant]
     Active Substance: SODIUM BICARBONATE
     Indication: EVIDENCE BASED TREATMENT
     Dosage: 50 MILLIEQUIVALENT MULTIPLE DOSES

REACTIONS (1)
  - Drug ineffective [Unknown]
